FAERS Safety Report 9061479 (Version 4)
Quarter: 2013Q2

REPORT INFORMATION
  Report Type: Spontaneous
  Country: JP (occurrence: JP)
  Receive Date: 20130204
  Receipt Date: 20130411
  Transmission Date: 20140414
  Serious: Yes (Hospitalization, Other)
  Sender: FDA-Public Use
  Company Number: JP-JNJFOC-20130105673

PATIENT
  Age: 69 Year
  Sex: Male
  Weight: 65 kg

DRUGS (33)
  1. BAKTAR [Concomitant]
     Indication: PROPHYLAXIS
     Dosage: STARTED ON ^11-JAN-2015^
     Route: 048
     Dates: start: 20130111
  2. MOBIC [Concomitant]
     Indication: BACK PAIN
     Route: 048
     Dates: start: 20130227
  3. MAXIPIME [Concomitant]
     Route: 042
     Dates: start: 20130104, end: 20130117
  4. PRODIF [Concomitant]
     Route: 042
     Dates: start: 20130106, end: 20130117
  5. GASTER [Concomitant]
     Indication: PROPHYLAXIS AGAINST GASTROINTESTINAL ULCER
     Route: 042
     Dates: start: 20130104, end: 20130111
  6. SIMPONI [Suspect]
     Indication: RHEUMATOID ARTHRITIS
     Route: 058
     Dates: start: 20120807, end: 20120807
  7. SIMPONI [Suspect]
     Indication: RHEUMATOID ARTHRITIS
     Route: 058
     Dates: start: 20120319, end: 20120319
  8. SIMPONI [Suspect]
     Indication: RHEUMATOID ARTHRITIS
     Route: 058
     Dates: start: 20120416, end: 20120416
  9. SIMPONI [Suspect]
     Indication: RHEUMATOID ARTHRITIS
     Route: 058
     Dates: start: 20120515, end: 20120515
  10. SIMPONI [Suspect]
     Indication: RHEUMATOID ARTHRITIS
     Route: 058
     Dates: start: 20120612, end: 20120612
  11. SIMPONI [Suspect]
     Indication: RHEUMATOID ARTHRITIS
     Route: 058
     Dates: start: 20120710, end: 20120710
  12. SIMPONI [Suspect]
     Indication: RHEUMATOID ARTHRITIS
     Route: 058
     Dates: start: 20120123
  13. SIMPONI [Suspect]
     Indication: RHEUMATOID ARTHRITIS
     Route: 058
     Dates: start: 20120905, end: 20120905
  14. SIMPONI [Suspect]
     Indication: RHEUMATOID ARTHRITIS
     Route: 058
     Dates: start: 20121003, end: 20121003
  15. SIMPONI [Suspect]
     Indication: RHEUMATOID ARTHRITIS
     Route: 058
     Dates: start: 20121113, end: 20121113
  16. SIMPONI [Suspect]
     Indication: RHEUMATOID ARTHRITIS
     Route: 058
     Dates: start: 20121211, end: 20121211
  17. SIMPONI [Suspect]
     Indication: RHEUMATOID ARTHRITIS
     Route: 058
     Dates: start: 20120220, end: 20120220
  18. METHOTREXATE [Suspect]
     Indication: RHEUMATOID ARTHRITIS
     Route: 048
     Dates: end: 20111116
  19. METHOTREXATE [Suspect]
     Indication: RHEUMATOID ARTHRITIS
     Route: 048
     Dates: start: 20111117, end: 20111218
  20. METHOTREXATE [Suspect]
     Indication: RHEUMATOID ARTHRITIS
     Route: 048
     Dates: start: 20111219, end: 20121226
  21. SOL-MELCORT [Suspect]
     Indication: LYMPHOPROLIFERATIVE DISORDER
     Route: 042
     Dates: start: 20130104, end: 20130106
  22. SOL-MELCORT [Suspect]
     Indication: LYMPHOPROLIFERATIVE DISORDER
     Route: 042
     Dates: start: 20130107, end: 20130109
  23. PREDNISOLONE [Concomitant]
     Indication: RHEUMATOID ARTHRITIS
     Route: 048
     Dates: start: 20111013, end: 20121226
  24. PREDNISOLONE [Concomitant]
     Indication: RHEUMATOID ARTHRITIS
     Route: 048
     Dates: start: 20130227
  25. OSTELUC [Concomitant]
     Indication: RHEUMATOID ARTHRITIS
     Route: 048
     Dates: start: 20081210, end: 20121226
  26. FOLIAMIN [Concomitant]
     Indication: PROPHYLAXIS
     Route: 048
     Dates: start: 20080916, end: 20121226
  27. TAKEPRON [Concomitant]
     Indication: PROPHYLAXIS AGAINST GASTROINTESTINAL ULCER
     Route: 048
     Dates: start: 20121227, end: 20130110
  28. TAKEPRON [Concomitant]
     Indication: PROPHYLAXIS AGAINST GASTROINTESTINAL ULCER
     Route: 048
     Dates: start: 20090416, end: 20121226
  29. TAKEPRON [Concomitant]
     Indication: PROPHYLAXIS AGAINST GASTROINTESTINAL ULCER
     Route: 048
     Dates: start: 20130111
  30. METHYCOBAL [Concomitant]
     Indication: NEUROPATHY PERIPHERAL
     Route: 048
     Dates: start: 20111013, end: 20121226
  31. MOHRUS TAPE [Concomitant]
     Indication: RHEUMATOID ARTHRITIS
     Route: 062
     Dates: start: 20120123, end: 20120220
  32. ISCOTIN [Concomitant]
     Indication: PROPHYLAXIS
     Route: 048
     Dates: start: 20111221, end: 20121226
  33. MIYA BM [Concomitant]
     Indication: DIARRHOEA
     Dosage: DOSAGE FORM: FINE GRAIN
     Route: 048
     Dates: start: 20121227, end: 20130102

REACTIONS (4)
  - Lymphoproliferative disorder [Not Recovered/Not Resolved]
  - Cytomegalovirus infection [Not Recovered/Not Resolved]
  - Altered state of consciousness [Recovered/Resolved]
  - Rheumatoid arthritis [Recovering/Resolving]
